FAERS Safety Report 8065430-8 (Version None)
Quarter: 2011Q4

REPORT INFORMATION
  Report Type: 
  Country: None (occurrence: None)
  Receive Date: 20111221
  Receipt Date: 20110504
  Transmission Date: 20120403
  Serious: Yes (Other)
  Sender: FDA-Public Use
  Company Number: PHHY2011US38717

PATIENT
  Age: 24 Year
  Sex: Male

DRUGS (1)
  1. EXJADE [Suspect]
     Indication: APLASTIC ANAEMIA
     Dosage: 2000 MG, QD, ROAL
     Route: 048
     Dates: start: 20101215

REACTIONS (1)
  - PLATELET COUNT DECREASED [None]
